FAERS Safety Report 18313985 (Version 3)
Quarter: 2022Q1

REPORT INFORMATION
  Report Type: Report from Study
  Country: GB (occurrence: GB)
  Receive Date: 20200925
  Receipt Date: 20220324
  Transmission Date: 20220423
  Serious: Yes (Other)
  Sender: FDA-Public Use
  Company Number: None

PATIENT
  Sex: Female

DRUGS (2)
  1. ERELZI [Suspect]
     Active Substance: ETANERCEPT-SZZS
     Indication: Rheumatoid arthritis
     Dosage: 50 MG, QW (AS DIRECTED)
     Route: 065
     Dates: start: 20200818
  2. ERELZI [Suspect]
     Active Substance: ETANERCEPT-SZZS
     Dosage: 50 MG, QW (PRE-FILLED PEN) (ROUTE: AS DIRECTED)
     Route: 065
     Dates: start: 20200915

REACTIONS (5)
  - Dementia [Unknown]
  - COVID-19 [Unknown]
  - Headache [Unknown]
  - Illness [Unknown]
  - Pain [Unknown]
